FAERS Safety Report 6734000-3 (Version None)
Quarter: 2010Q2

REPORT INFORMATION
  Report Type: 
  Country: None (occurrence: None)
  Receive Date: 20100518
  Receipt Date: 20100503
  Transmission Date: 20101027
  Serious: Yes (Other)
  Sender: FDA-Public Use
  Company Number: 7003604

PATIENT
  Age: 31 Year
  Sex: Female
  Weight: 82 kg

DRUGS (4)
  1. REBIF [Suspect]
     Indication: MULTIPLE SCLEROSIS
     Dosage: 44 MCG, 3 IN 1 WK, SUBCUTANEOUS
     Route: 058
     Dates: start: 20081106
  2. PREDNISONE TAB [Concomitant]
  3. PERCOCET [Concomitant]
  4. DARVOCET [Concomitant]

REACTIONS (9)
  - ABASIA [None]
  - HAIR GROWTH ABNORMAL [None]
  - HYPOGLYCAEMIA [None]
  - HYPOTHYROIDISM [None]
  - OVARIAN CYST [None]
  - PHOTOSENSITIVITY REACTION [None]
  - POLYMENORRHOEA [None]
  - SYNCOPE [None]
  - VITAMIN D DEFICIENCY [None]
